FAERS Safety Report 5958862-2 (Version None)
Quarter: 2008Q4

REPORT INFORMATION
  Report Type: 
  Country: None (occurrence: None)
  Receive Date: 20081117
  Receipt Date: 20081107
  Transmission Date: 20090506
  Serious: Yes (Other)
  Sender: FDA-Public Use
  Company Number: TR-1167826

PATIENT
  Age: 37 Year
  Sex: Male

DRUGS (9)
  1. CYCLOPENTOLATE HCL [Suspect]
     Indication: UVEITIS
     Dosage: 5ML/DAY OPHTHALMIC
     Route: 047
  2. METHYLPREDNISOLONE 16MG TAB [Concomitant]
  3. DEXAMETHASONE SODIUM PHOSPHATE [Concomitant]
  4. SERTRALINE [Concomitant]
  5. RISPERDAL [Concomitant]
  6. FLUOXETINE [Concomitant]
  7. ESCITALOPRAM [Concomitant]
  8. PIMOZIDE (PIMOZIDE) [Concomitant]
  9. CARBAMAZEPINE [Concomitant]

REACTIONS (7)
  - ANXIETY [None]
  - DECREASED INTEREST [None]
  - DEPENDENCE [None]
  - DISTURBANCE IN ATTENTION [None]
  - FEELING ABNORMAL [None]
  - INCORRECT DOSE ADMINISTERED [None]
  - VISION BLURRED [None]
